FAERS Safety Report 24217289 (Version 2)
Quarter: 2024Q3

REPORT INFORMATION
  Report Type: Report from Study
  Country: CA (occurrence: CA)
  Receive Date: 20240816
  Receipt Date: 20240917
  Transmission Date: 20241017
  Serious: Yes (Hospitalization)
  Sender: JOHNSON AND JOHNSON
  Company Number: CA-JNJFOC-20240601577

PATIENT
  Age: 22 Year
  Sex: Female
  Weight: 62 kg

DRUGS (2)
  1. REMICADE [Suspect]
     Active Substance: INFLIXIMAB
     Indication: Crohn^s disease
     Route: 041
  2. REMICADE [Suspect]
     Active Substance: INFLIXIMAB
     Route: 041
     Dates: start: 20240705

REACTIONS (14)
  - Mania [Recovering/Resolving]
  - Alcohol abuse [Recovering/Resolving]
  - Overdose [Unknown]
  - Streptococcal infection [Recovered/Resolved]
  - Abdominal pain [Recovering/Resolving]
  - Fatigue [Recovering/Resolving]
  - Anal fissure [Unknown]
  - Mucous stools [Unknown]
  - Tachycardia [Recovered/Resolved]
  - Food allergy [Unknown]
  - Anxiety [Unknown]
  - Diarrhoea [Recovering/Resolving]
  - Urinary tract infection [Recovering/Resolving]
  - Therapeutic response decreased [Unknown]

NARRATIVE: CASE EVENT DATE: 20240101
